FAERS Safety Report 9301321 (Version 4)
Quarter: 2013Q4

REPORT INFORMATION
  Report Type: Spontaneous
  Country: US (occurrence: US)
  Receive Date: 20130521
  Receipt Date: 20131218
  Transmission Date: 20140711
  Serious: Yes (Hospitalization, Other)
  Sender: FDA-Public Use
  Company Number: US-BAYER-2013-062478

PATIENT
  Age: 21 Year
  Sex: Female

DRUGS (2)
  1. YASMIN [Suspect]
     Indication: CONTRACEPTION
     Dosage: UNK
     Dates: start: 200112, end: 20020222
  2. LORTAB [Concomitant]
     Indication: PAIN MANAGEMENT

REACTIONS (15)
  - Deep vein thrombosis [Recovering/Resolving]
  - Thrombophlebitis superficial [Recovered/Resolved]
  - Deep vein thrombosis [Recovered/Resolved]
  - Deep vein thrombosis [None]
  - Local swelling [Recovering/Resolving]
  - Skin discolouration [Recovering/Resolving]
  - Pyrexia [None]
  - Cellulitis [None]
  - Local swelling [None]
  - Pain [Recovering/Resolving]
  - Injury [Recovering/Resolving]
  - General physical health deterioration [Recovering/Resolving]
  - Anxiety [None]
  - Emotional distress [None]
  - Pain [None]
